FAERS Safety Report 4509571-8 (Version None)
Quarter: 2004Q4

REPORT INFORMATION
  Report Type: 
  Country: None (occurrence: None)
  Receive Date: 20041119
  Receipt Date: 20041028
  Transmission Date: 20050328
  Serious: Yes (Other)
  Sender: FDA-Public Use
  Company Number: USA041082560

PATIENT
  Age: 66 Year
  Sex: Female

DRUGS (2)
  1. GEMZAR [Suspect]
     Indication: NON-SMALL CELL LUNG CANCER
     Dosage: 1100 MG
     Dates: start: 20041005
  2. CARBOPLATIN [Concomitant]

REACTIONS (2)
  - PLATELET COUNT INCREASED [None]
  - THROMBOCYTOPENIA [None]
